FAERS Safety Report 5942517-4 (Version None)
Quarter: 2008Q4

REPORT INFORMATION
  Report Type: 
  Country: None (occurrence: None)
  Receive Date: 20081105
  Receipt Date: 20081021
  Transmission Date: 20090506
  Serious: Yes (Hospitalization)
  Sender: FDA-Public Use
  Company Number: ES-GENENTECH-270587

PATIENT
  Age: 43 Year
  Sex: Female

DRUGS (1)
  1. MABTHERA [Suspect]
     Indication: SCLERODERMA
     Dosage: 1 G, Q3W
     Route: 042
     Dates: start: 20070131, end: 20081020

REACTIONS (2)
  - CARDIAC FAILURE [None]
  - OLIGURIA [None]
